FAERS Safety Report 8046522-6 (Version None)
Quarter: 2012Q1

REPORT INFORMATION
  Report Type: 
  Country: None (occurrence: None)
  Receive Date: 20120113
  Receipt Date: 20120104
  Transmission Date: 20120608
  Serious: Yes (Hospitalization, Other)
  Sender: FDA-Public Use
  Company Number: US-ASTRAZENECA-2011SE27154

PATIENT
  Age: 62 Year
  Sex: Male

DRUGS (4)
  1. VARIOUS MEDS [Concomitant]
  2. TOPROL-XL [Suspect]
     Indication: CARDIAC FAILURE
     Route: 048
     Dates: end: 20101101
  3. INSULIN [Concomitant]
  4. TOPROL-XL [Suspect]
     Route: 048

REACTIONS (54)
  - SUICIDAL IDEATION [None]
  - MYOCARDIAL INFARCTION [None]
  - PHOTOPHOBIA [None]
  - SOMNOLENCE [None]
  - DYSPEPSIA [None]
  - VOMITING [None]
  - BLINDNESS TRANSIENT [None]
  - WEIGHT DECREASED [None]
  - MIGRAINE [None]
  - HYPOAESTHESIA [None]
  - EYELID PTOSIS [None]
  - DIPLOPIA [None]
  - URINARY RETENTION [None]
  - LETHARGY [None]
  - CONSTIPATION [None]
  - FATIGUE [None]
  - DIARRHOEA [None]
  - ATAXIA [None]
  - DRY EYE [None]
  - MUSCLE SPASMS [None]
  - MUSCLE TIGHTNESS [None]
  - DRY MOUTH [None]
  - ABDOMINAL PAIN UPPER [None]
  - DEPRESSION [None]
  - SWEAT GLAND DISORDER [None]
  - COUGH [None]
  - MYALGIA [None]
  - ALOPECIA [None]
  - INSOMNIA [None]
  - WHEEZING [None]
  - CATATONIA [None]
  - VIITH NERVE PARALYSIS [None]
  - FLUSHING [None]
  - DYSURIA [None]
  - HYPERGLYCAEMIA [None]
  - HOT FLUSH [None]
  - SPEECH DISORDER [None]
  - HALLUCINATION [None]
  - NIGHT SWEATS [None]
  - ABNORMAL BEHAVIOUR [None]
  - FEELING ABNORMAL [None]
  - AMNESIA [None]
  - ERECTILE DYSFUNCTION [None]
  - DIZZINESS [None]
  - DRUG PRESCRIBING ERROR [None]
  - ANXIETY [None]
  - NEUROPATHY PERIPHERAL [None]
  - FEELING DRUNK [None]
  - DRUG HYPERSENSITIVITY [None]
  - HYPERTENSION [None]
  - FLATULENCE [None]
  - HYPOGLYCAEMIA [None]
  - VERTIGO [None]
  - PERIPHERAL COLDNESS [None]
